FAERS Safety Report 9409885 (Version 1)
Quarter: 2013Q2

REPORT INFORMATION
  Report Type: Spontaneous
  Country: AU (occurrence: None)
  Receive Date: 20130530
  Receipt Date: 20130530
  Transmission Date: 20140414
  Serious: Yes (Other)
  Sender: FDA-Public Use
  Company Number: 2009020394

PATIENT
  Age: 60 Year
  Sex: Female

DRUGS (1)
  1. ALPHA1-PROTEINASE INHIBITOR HUMAN [Suspect]
     Indication: ALPHA-1 ANTI-TRYPSIN DEFICIENCY
     Route: 042
     Dates: start: 20090611

REACTIONS (1)
  - Musculoskeletal chest pain [None]
